FAERS Safety Report 10388421 (Version 2)
Quarter: 2015Q1

REPORT INFORMATION
  Report Type: Report from Study
  Country: US (occurrence: US)
  Receive Date: 20140815
  Receipt Date: 20150114
  Transmission Date: 20150720
  Serious: No
  Sender: FDA-Public Use
  Company Number: US-ALEXION-A201002132

PATIENT

DRUGS (2)
  1. SOLIRIS [Suspect]
     Active Substance: ECULIZUMAB
     Indication: PAROXYSMAL NOCTURNAL HAEMOGLOBINURIA
     Dosage: UNK
     Route: 042
     Dates: start: 2005
  2. SOLIRIS [Suspect]
     Active Substance: ECULIZUMAB
     Dosage: 900 MG, Q2W
     Route: 042
     Dates: start: 20090127

REACTIONS (4)
  - Quality of life decreased [Unknown]
  - Fatigue [Unknown]
  - Abdominal pain [Unknown]
  - Haemoglobinuria [Not Recovered/Not Resolved]

NARRATIVE: CASE EVENT DATE: 20130219
